FAERS Safety Report 10948702 (Version 2)
Quarter: 2015Q1

REPORT INFORMATION
  Report Type: Report from Study
  Country: CA (occurrence: None)
  Receive Date: 20150320
  Receipt Date: 20150330
  Transmission Date: 20150721
  Serious: Yes (Death, Hospitalization, Other)
  Sender: FDA-Public Use
  Company Number: 2015FE00834

PATIENT
  Age: 76 Year
  Sex: Male

DRUGS (19)
  1. VITAMIN B12 [Concomitant]
     Active Substance: CYANOCOBALAMIN
  2. LORAZEPAM. [Concomitant]
     Active Substance: LORAZEPAM
  3. CLONAZEPAM. [Concomitant]
     Active Substance: CLONAZEPAM
  4. METFORMIN [Concomitant]
     Active Substance: METFORMIN HYDROCHLORIDE
  5. DEGARELIX (DEGARELIX) POWDER AND SOLVENT FOR SOLUTION FOR INJECTION [Suspect]
     Active Substance: DEGARELIX
     Indication: PROSTATE CANCER
     Route: 058
     Dates: start: 20140904, end: 20150318
  6. LANTUS [Concomitant]
     Active Substance: INSULIN GLARGINE
  7. INDAPAMIDE. [Concomitant]
     Active Substance: INDAPAMIDE
  8. ROSUVASTATIN [Concomitant]
     Active Substance: ROSUVASTATIN
  9. CITALOPRAM [Concomitant]
     Active Substance: CITALOPRAM HYDROBROMIDE
  10. GLICLAZIDE [Concomitant]
     Active Substance: GLICLAZIDE
  11. ASPIRIN. [Concomitant]
     Active Substance: ASPIRIN
  12. ATENOLOL. [Concomitant]
     Active Substance: ATENOLOL
  13. CIPRALEX (ESCITALOPRAM) [Concomitant]
  14. CALCIUM [Concomitant]
     Active Substance: CALCIUM
  15. TYLENOL NO.2 (CAFFEINE, CODEINE PHOSPHATE, PARACETAMOL) [Concomitant]
  16. TOLOXIN (DIGOXIN) [Concomitant]
  17. AMLODIPINE [Concomitant]
     Active Substance: AMLODIPINE BESYLATE
  18. RAMIPRIL. [Concomitant]
     Active Substance: RAMIPRIL
  19. TECTA (PANTOPRAZOLE MAGNESIUM) [Concomitant]
     Active Substance: PANTOPRAZOLE MAGNESIUM

REACTIONS (4)
  - Metastases to bone [None]
  - Metastases to lung [None]
  - Respiratory depression [None]
  - Anaemia [None]

NARRATIVE: CASE EVENT DATE: 20150304
